FAERS Safety Report 11099716 (Version 1)
Quarter: 2015Q2

REPORT INFORMATION
  Report Type: Spontaneous
  Country: HK (occurrence: None)
  Receive Date: 20150506
  Receipt Date: 20150506
  Transmission Date: 20150821
  Serious: Yes (Other)
  Sender: FDA-Public Use
  Company Number: FK201502011

PATIENT
  Age: 46 Year
  Sex: Female

DRUGS (1)
  1. INTRALIPID [Suspect]
     Active Substance: EGG PHOSPHOLIPIDS\GLYCERIN\SOYBEAN OIL
     Indication: DETOXIFICATION
     Dosage: 100 ML, INTRAVENOUS DRIP
     Route: 041

REACTIONS (2)
  - Hepatic function abnormal [None]
  - Hyperlipidaemia [None]
